FAERS Safety Report 16070263 (Version 1)
Quarter: 2019Q1

REPORT INFORMATION
  Report Type: Spontaneous
  Country: US (occurrence: US)
  Receive Date: 20190314
  Receipt Date: 20190314
  Transmission Date: 20190418
  Serious: Yes (Death, Hospitalization, Other)
  Sender: FDA-Public Use
  Company Number: US-APOTEX-2019AP009278

PATIENT
  Age: 89 Year
  Sex: Female

DRUGS (3)
  1. AMIODARONE [Suspect]
     Active Substance: AMIODARONE
     Dosage: 400 MG, QD
     Route: 065
  2. AMIODARONE [Suspect]
     Active Substance: AMIODARONE
     Indication: ATRIAL FIBRILLATION
     Dosage: 200 MG, QD
     Route: 065
  3. RIVAROXABAN [Suspect]
     Active Substance: RIVAROXABAN
     Indication: THROMBOSIS PROPHYLAXIS
     Dosage: 20 MG, QD
     Route: 065

REACTIONS (2)
  - Acute hepatic failure [Fatal]
  - Drug interaction [Unknown]
